FAERS Safety Report 25173890 (Version 1)
Quarter: 2025Q2

REPORT INFORMATION
  Report Type: Spontaneous
  Country: US (occurrence: None)
  Receive Date: 20250405
  Receipt Date: 20250405
  Transmission Date: 20250716
  Serious: Yes (Other)
  Sender: FDA-CTU
  Company Number: None

PATIENT

DRUGS (3)
  1. FENTANYL [Suspect]
     Active Substance: FENTANYL
  2. DEVICE [Suspect]
     Active Substance: DEVICE
  3. Baxter Novum IQ IV pump [Concomitant]

REACTIONS (3)
  - Incorrect drug administration rate [None]
  - Hypervigilance [None]
  - Agitation [None]

NARRATIVE: CASE EVENT DATE: 20250320
